FAERS Safety Report 6401042-7 (Version None)
Quarter: 2009Q4

REPORT INFORMATION
  Report Type: 
  Country: None (occurrence: None)
  Receive Date: 20091013
  Receipt Date: 20091013
  Transmission Date: 20100525
  Serious: Yes (Other)
  Sender: FDA-Public Use
  Company Number: None

PATIENT

DRUGS (2)
  1. GENTAK [Suspect]
     Indication: INFECTION PROPHYLAXIS
     Dosage: 1 RIBBON TO BOTH EVES ONE TIME TOP
     Route: 061
     Dates: start: 20091008, end: 20091008
  2. GENTAK [Suspect]

REACTIONS (3)
  - BLISTER [None]
  - EYELID DISORDER [None]
  - EYELID OEDEMA [None]
